FAERS Safety Report 14618136 (Version 2)
Quarter: 2018Q2

REPORT INFORMATION
  Report Type: Spontaneous
  Country: US (occurrence: US)
  Receive Date: 20180309
  Receipt Date: 20180606
  Transmission Date: 20180711
  Serious: No
  Sender: FDA-Public Use
  Company Number: US-PTC THERAPEUTICS, INC.-US-2017PTC001526

PATIENT

DRUGS (2)
  1. EMFLAZA [Suspect]
     Active Substance: DEFLAZACORT
     Dosage: 15 MG, QD
     Route: 048
     Dates: start: 20171114
  2. EMFLAZA [Suspect]
     Active Substance: DEFLAZACORT
     Indication: DUCHENNE MUSCULAR DYSTROPHY
     Dosage: 15 MG, QD
     Route: 048
     Dates: start: 20171017

REACTIONS (7)
  - Gait disturbance [Unknown]
  - Cushingoid [Unknown]
  - Abnormal behaviour [Unknown]
  - Weight increased [Unknown]
  - Mood altered [Unknown]
  - Personality change [Unknown]
  - Aggression [Unknown]

NARRATIVE: CASE EVENT DATE: 20171027
